FAERS Safety Report 4421436-9 (Version None)
Quarter: 2004Q3

REPORT INFORMATION
  Report Type: 
  Country: None (occurrence: None)
  Receive Date: 20040708
  Receipt Date: 20031021
  Transmission Date: 20050211
  Serious: Yes (Death)
  Sender: FDA-Public Use
  Company Number: 139136USA

PATIENT

DRUGS (1)
  1. CYTOSAR-U [Suspect]

REACTIONS (1)
  - DEATH [None]
